FAERS Safety Report 21289672 (Version 1)
Quarter: 2022Q3

REPORT INFORMATION
  Report Type: Spontaneous
  Country: US (occurrence: US)
  Receive Date: 20220902
  Receipt Date: 20220902
  Transmission Date: 20221027
  Serious: Yes (Death, Other)
  Sender: FDA-Public Use
  Company Number: None

PATIENT
  Age: 84 Year
  Sex: Male

DRUGS (2)
  1. HEPARIN SODIUM [Suspect]
     Active Substance: HEPARIN SODIUM
     Indication: Acute coronary syndrome
     Dosage: USP 40,000 USP UNITS PER 4 ML
     Route: 065
     Dates: start: 20220815, end: 202208
  2. HEPARIN SODIUM [Suspect]
     Active Substance: HEPARIN SODIUM
     Indication: Atrial fibrillation

REACTIONS (6)
  - Death [Fatal]
  - Thrombosis [Unknown]
  - Cerebrovascular accident [Unknown]
  - Platelet count decreased [Unknown]
  - Pulse absent [Unknown]
  - Product quality issue [Unknown]

NARRATIVE: CASE EVENT DATE: 20220816
